FAERS Safety Report 8178409-2 (Version None)
Quarter: 2012Q1

REPORT INFORMATION
  Report Type: 
  Country: None (occurrence: None)
  Receive Date: 20120301
  Receipt Date: 20120210
  Transmission Date: 20120608
  Serious: Yes (Life-Threatening, Hospitalization, Other)
  Sender: FDA-Public Use
  Company Number: FR-PFIZER INC-2012036442

PATIENT
  Age: 80 Year
  Sex: Male

DRUGS (10)
  1. RISPERDAL [Suspect]
     Dosage: 0.5 MG, 2X/DAY
     Route: 048
     Dates: start: 20110928, end: 20111001
  2. IKOREL [Suspect]
     Dosage: 10 MG, 1X/DAY
     Route: 048
  3. RISPERDAL [Suspect]
     Indication: DEMENTIA ALZHEIMER'S TYPE
     Dosage: 0.25 MG, 2X/DAY
     Route: 048
     Dates: start: 20110926, end: 20110927
  4. MEMANTINE HYDROCHLORIDE [Suspect]
     Indication: DEMENTIA ALZHEIMER'S TYPE
     Dosage: 20 MG, 1X/DAY
     Route: 048
  5. ASPIRIN [Suspect]
     Dosage: 75 MG, 1X/DAY
     Route: 048
  6. XANAX [Suspect]
     Indication: ANXIETY
     Dosage: 0.25 MG, 1X/DAY
     Route: 048
     Dates: start: 20110928, end: 20111004
  7. PERINDOPRIL [Suspect]
     Dosage: 4 MG, 1X/DAY
     Route: 048
  8. ARICEPT [Suspect]
     Indication: DEMENTIA ALZHEIMER'S TYPE
     Dosage: 10 MG, 1X/DAY
     Route: 048
  9. RISPERDAL [Suspect]
     Dosage: 1 MG, 2X/DAY
     Route: 048
     Dates: start: 20111002, end: 20111005
  10. ESCITALOPRAM OXALATE [Suspect]
     Dosage: 10 MG, 1X/DAY
     Route: 048
     Dates: end: 20111003

REACTIONS (5)
  - AGGRESSION [None]
  - THROMBOCYTOPENIA [None]
  - PULMONARY EMBOLISM [None]
  - ANXIETY [None]
  - DEMENTIA ALZHEIMER'S TYPE [None]
